FAERS Safety Report 8364558-2 (Version None)
Quarter: 2012Q2

REPORT INFORMATION
  Report Type: 
  Country: None (occurrence: None)
  Receive Date: 20120516
  Receipt Date: 20120510
  Transmission Date: 20120825
  Serious: Yes (Hospitalization)
  Sender: FDA-Public Use
  Company Number: US-BAYER-2012-006988

PATIENT
  Age: 29 Year
  Sex: Female
  Weight: 79.365 kg

DRUGS (9)
  1. YASMIN [Suspect]
  2. DIFLUCAN [Concomitant]
     Indication: FUNGAL INFECTION
  3. DROSPIRENONE AND ETHINYL ESTRADIOL [Suspect]
     Indication: CONTRACEPTION
     Dosage: UNK
     Dates: start: 20100401, end: 20100705
  4. DROSPIRENONE AND ETHINYL ESTRADIOL [Suspect]
     Dosage: UNK
     Dates: start: 20100401, end: 20100501
  5. VICODIN [Concomitant]
     Route: 048
  6. PROBIOTICS [Concomitant]
  7. YAZ [Suspect]
     Indication: CONTRACEPTION
     Dosage: UNK
     Dates: start: 20070301, end: 20100224
  8. ACYCLOVIR [Concomitant]
     Indication: HERPES VIRUS INFECTION
     Dosage: 400 MG, QD
     Dates: start: 20040101
  9. YAZ [Suspect]
     Dosage: UNK
     Dates: start: 20070301, end: 20100401

REACTIONS (6)
  - CHOLECYSTITIS CHRONIC [None]
  - NAUSEA [None]
  - CHOLELITHIASIS [None]
  - INJURY [None]
  - ABDOMINAL PAIN [None]
  - VOMITING [None]
